FAERS Safety Report 6715003-1 (Version None)
Quarter: 2010Q2

REPORT INFORMATION
  Report Type: 
  Country: None (occurrence: None)
  Receive Date: 20100507
  Receipt Date: 20100429
  Transmission Date: 20101027
  Serious: Yes (Other)
  Sender: FDA-Public Use
  Company Number: GB-ASTRAZENECA-2010SE06913

PATIENT
  Sex: Male

DRUGS (5)
  1. FELODIPINE [Suspect]
     Indication: HYPERTENSION
     Route: 048
     Dates: start: 20090929, end: 20091102
  2. FENTANYL [Concomitant]
     Route: 062
     Dates: start: 20070701
  3. LACTULOSE [Concomitant]
     Indication: CONSTIPATION
     Dosage: DAILY
     Route: 048
     Dates: start: 20090101
  4. SENNA [Concomitant]
     Indication: CONSTIPATION
     Route: 048
     Dates: start: 20020101
  5. SEVREDOL [Concomitant]
     Indication: BACK PAIN
     Route: 048

REACTIONS (2)
  - ORAL DISCOMFORT [None]
  - TOOTH LOSS [None]
